FAERS Safety Report 13079964 (Version 2)
Quarter: 2017Q1

REPORT INFORMATION
  Report Type: Report from Study
  Country: EC (occurrence: EC)
  Receive Date: 20170103
  Receipt Date: 20170221
  Transmission Date: 20170428
  Serious: Yes (Other)
  Sender: FDA-Public Use
  Company Number: EC-EMD SERONO-8132544

PATIENT
  Age: 14 Year
  Sex: Male

DRUGS (2)
  1. SAIZEN [Suspect]
     Active Substance: SOMATROPIN
     Indication: GROWTH HORMONE DEFICIENCY
     Route: 058
     Dates: start: 20160902
  2. SAIZEN [Suspect]
     Active Substance: SOMATROPIN
     Dosage: REINTRODUCED AT AN UNKNOWN DOSAGE

REACTIONS (1)
  - Epiphyses premature fusion [Unknown]

NARRATIVE: CASE EVENT DATE: 201612
